FAERS Safety Report 6032831-9 (Version None)
Quarter: 2009Q1

REPORT INFORMATION
  Report Type: 
  Country: None (occurrence: None)
  Receive Date: 20090105
  Receipt Date: 20081003
  Transmission Date: 20090719
  Serious: Yes (Hospitalization)
  Sender: FDA-Public Use
  Company Number: US-001941

PATIENT
  Age: 48 Year
  Sex: Female

DRUGS (7)
  1. PROHANCE [Suspect]
     Indication: NUCLEAR MAGNETIC RESONANCE IMAGING
     Dosage: 20ML QD INTRAVENOUS
     Route: 042
     Dates: start: 20081001, end: 20081001
  2. PROHANCE [Suspect]
     Indication: PITUITARY CYST
     Dosage: 20ML QD INTRAVENOUS
     Route: 042
     Dates: start: 20081001, end: 20081001
  3. FLEXERIL [Concomitant]
  4. TRAZODON (TRAZODONE HYDROCHLORIDE) [Concomitant]
  5. WELLBUTRIN [Concomitant]
  6. PAXIL [Concomitant]
  7. GEODON (ZIPRASIDONE HYDROCHLORIDE) [Concomitant]

REACTIONS (3)
  - ANXIETY [None]
  - STRESS [None]
  - SYNCOPE [None]
